FAERS Safety Report 16271678 (Version 2)
Quarter: 2019Q2

REPORT INFORMATION
  Report Type: Spontaneous
  Country: FR (occurrence: FR)
  Receive Date: 20190503
  Receipt Date: 20190523
  Transmission Date: 20190711
  Serious: Yes (Other)
  Sender: FDA-Public Use
  Company Number: FR-ASTRAZENECA-2019SE66386

PATIENT
  Age: 26703 Day
  Sex: Male
  Weight: 67 kg

DRUGS (1)
  1. IMFINZI [Suspect]
     Active Substance: DURVALUMAB
     Route: 042
     Dates: start: 20190228, end: 20190411

REACTIONS (8)
  - Pleural effusion [Unknown]
  - Cough [Unknown]
  - Malignant neoplasm progression [Unknown]
  - Lower respiratory tract congestion [Unknown]
  - Lung infection [Unknown]
  - Pulmonary mass [Unknown]
  - Blood creatine abnormal [Unknown]
  - Lymphangiosis carcinomatosa [Unknown]

NARRATIVE: CASE EVENT DATE: 20190417
